FAERS Safety Report 9372565 (Version 2)
Quarter: 2014Q2

REPORT INFORMATION
  Report Type: Report from Study
  Country: US (occurrence: US)
  Receive Date: 20130627
  Receipt Date: 20140626
  Transmission Date: 20141212
  Serious: Yes (Other)
  Sender: FDA-Public Use
  Company Number: US-MYLANLABS-2013S1001064

PATIENT
  Age: 62 Year
  Sex: Female
  Weight: 83.92 kg

DRUGS (5)
  1. CLOZAPINE TABLETS [Suspect]
     Indication: SCHIZOPHRENIA
     Dates: start: 201212, end: 20130416
  2. CLOZAPINE TABLETS [Suspect]
     Indication: SCHIZOPHRENIA
     Dates: start: 201212, end: 20130416
  3. CLOZAPINE TABLETS [Suspect]
     Indication: SCHIZOPHRENIA
     Dates: start: 20130424, end: 20130513
  4. DEPAKOTE [Concomitant]
  5. TRILAFON /00023401/ [Concomitant]

REACTIONS (1)
  - Granulocytopenia [Not Recovered/Not Resolved]
